FAERS Safety Report 13036410 (Version 2)
Quarter: 2017Q1

REPORT INFORMATION
  Report Type: Spontaneous
  Country: US (occurrence: US)
  Receive Date: 20161216
  Receipt Date: 20170112
  Transmission Date: 20170428
  Serious: Yes (Hospitalization, Other)
  Sender: FDA-Public Use
  Company Number: US-PFIZER INC-2016576143

PATIENT
  Age: 66 Year
  Sex: Male

DRUGS (10)
  1. AMLODIPINE [Concomitant]
     Active Substance: AMLODIPINE BESYLATE
     Dosage: 5 MG, UNK
  2. SUTENT [Suspect]
     Active Substance: SUNITINIB MALATE
     Dosage: 50 MG, CYCLIC (ONCE DAY 4 WKS ON 2 WKS OFF)
     Dates: start: 20161107, end: 20161117
  3. WARFARIN [Concomitant]
     Active Substance: WARFARIN
     Indication: ATRIAL FIBRILLATION
     Dosage: 2 MG, ALTERNATE DAY (SUN, TUE, THUS, SAT)
     Dates: start: 2006
  4. BISMUTH SUBSALICYLATE. [Concomitant]
     Active Substance: BISMUTH SUBSALICYLATE
     Indication: ABDOMINAL DISCOMFORT
     Dosage: 30 ML, 2X/DAY (525MG)
     Route: 048
     Dates: start: 20160501, end: 20161117
  5. BISMUTH SUBSALICYLATE. [Concomitant]
     Active Substance: BISMUTH SUBSALICYLATE
     Indication: DIARRHOEA
  6. HYDRALAZINE [Concomitant]
     Active Substance: HYDRALAZINE HYDROCHLORIDE
     Dosage: 50 MG, 3X/DAY (1 TAB EVERY 8 HRS)
  7. SUTENT [Suspect]
     Active Substance: SUNITINIB MALATE
     Indication: RENAL CELL CARCINOMA
     Dosage: UNK
     Dates: start: 201404
  8. WARFARIN [Concomitant]
     Active Substance: WARFARIN
     Dosage: 3 MG, ALTERNATE DAY (MON, WED, FRI)
     Dates: start: 2006
  9. METOPROLOL. [Concomitant]
     Active Substance: METOPROLOL
     Dosage: 250 MG, DAILY (100 MG, 1.5 TAB MORN 1 TAB NIGHT)
  10. FUROSEMIDE. [Concomitant]
     Active Substance: FUROSEMIDE
     Dosage: 40 MG, UNK

REACTIONS (2)
  - International normalised ratio increased [Recovered/Resolved]
  - Haematoma [Recovered/Resolved]
